FAERS Safety Report 6518533-0 (Version None)
Quarter: 2009Q4

REPORT INFORMATION
  Report Type: 
  Country: None (occurrence: None)
  Receive Date: 20091226
  Receipt Date: 20091221
  Transmission Date: 20100525
  Serious: Yes (Death, Life-Threatening)
  Sender: FDA-Public Use
  Company Number: DE-JNJFOC-20091101912

PATIENT
  Age: 88 Year
  Sex: Female

DRUGS (8)
  1. HALDOL [Suspect]
     Indication: ABNORMAL BEHAVIOUR
     Route: 048
     Dates: start: 20090416, end: 20090505
  2. HALDOL [Suspect]
     Route: 048
     Dates: start: 20090416, end: 20090505
  3. HALDOL [Suspect]
     Route: 048
     Dates: start: 20090416, end: 20090505
  4. HALDOL [Suspect]
     Indication: MENTAL DISORDER
     Route: 048
     Dates: start: 20090416, end: 20090505
  5. HALDOL [Suspect]
     Route: 048
     Dates: start: 20090416, end: 20090505
  6. HALDOL [Suspect]
     Route: 048
     Dates: start: 20090416, end: 20090505
  7. HALDOL [Suspect]
     Route: 042
     Dates: start: 20090430
  8. HALDOL [Suspect]
     Route: 042
     Dates: start: 20090430

REACTIONS (2)
  - CARDIAC FAILURE [None]
  - PNEUMONIA [None]
